FAERS Safety Report 18513784 (Version 4)
Quarter: 2023Q4

REPORT INFORMATION
  Report Type: Spontaneous
  Country: CA (occurrence: CA)
  Receive Date: 20201117
  Receipt Date: 20231228
  Transmission Date: 20240110
  Serious: Yes (Death, Other)
  Sender: FDA-Public Use
  Company Number: CA-MUNDIPHARMA RESEARCH LIMITED-CAN-2020-0011844

PATIENT
  Age: 58 Year
  Sex: Female

DRUGS (20)
  1. OXYCODONE HYDROCHLORIDE [Suspect]
     Active Substance: OXYCODONE HYDROCHLORIDE
     Indication: Product used for unknown indication
     Dosage: UNK
     Route: 065
  2. AFINITOR [Suspect]
     Active Substance: EVEROLIMUS
     Indication: Product used for unknown indication
     Dosage: 10 MG, DAILY
     Route: 048
  3. AMLODIPINE BESYLATE [Suspect]
     Active Substance: AMLODIPINE BESYLATE
     Indication: Product used for unknown indication
     Dosage: 5 MG, DAILY
     Route: 048
  4. PANTOPRAZOLE [Suspect]
     Active Substance: PANTOPRAZOLE
     Indication: Product used for unknown indication
     Dosage: UNK
     Route: 065
  5. SANDOSTATIN [Suspect]
     Active Substance: OCTREOTIDE ACETATE
     Indication: Carcinoid tumour
     Dosage: 30 MG, MONTHLY
     Route: 030
  6. SANDOSTATIN [Suspect]
     Active Substance: OCTREOTIDE ACETATE
     Dosage: 30 MG, MONTHLY
     Route: 030
  7. SANDOSTATIN [Suspect]
     Active Substance: OCTREOTIDE ACETATE
     Dosage: 20 MG, MONTHLY
     Route: 030
  8. SANDOSTATIN [Suspect]
     Active Substance: OCTREOTIDE ACETATE
     Indication: Carcinoid tumour
     Dosage: UNK
     Route: 058
  9. PANTOPRAZOLE SODIUM ANHYDROUS [Suspect]
     Active Substance: PANTOPRAZOLE SODIUM ANHYDROUS
     Indication: Product used for unknown indication
     Dosage: UNK
     Route: 065
  10. GLICLAZIDE [Concomitant]
     Active Substance: GLICLAZIDE
     Indication: Product used for unknown indication
     Dosage: 60 MG, UNK
     Route: 065
  11. FOSINOPRIL SODIUM [Concomitant]
     Active Substance: FOSINOPRIL SODIUM
     Indication: Product used for unknown indication
     Dosage: 20 MG, DAILY
     Route: 048
  12. METFORMIN HYDROCHLORIDE;SAXAGLIPTIN HYDROCHLORIDE [Concomitant]
     Indication: Product used for unknown indication
     Dosage: 2.5 MG, BID
     Route: 065
  13. METFORMIN HYDROCHLORIDE;SAXAGLIPTIN HYDROCHLORIDE [Concomitant]
     Dosage: 2.5 MG, BID
     Route: 065
  14. SYNTHROID [Concomitant]
     Active Substance: LEVOTHYROXINE SODIUM
     Indication: Product used for unknown indication
     Dosage: 0.025 MG, DAILY
     Route: 048
  15. METFORMIN HYDROCHLORIDE [Concomitant]
     Active Substance: METFORMIN HYDROCHLORIDE
     Indication: Product used for unknown indication
     Dosage: 2.5 MILLIGRAM, BID
     Route: 065
  16. ACETYLSALICYLIC ACID;CODEINE PHOSPHATE [Concomitant]
     Indication: Cardiovascular disorder
     Dosage: 80 MILLIGRAM, 1 EVERY 1 DAYS
     Route: 065
  17. AFINITOR [Concomitant]
     Active Substance: EVEROLIMUS
     Indication: Product used for unknown indication
     Dosage: 10 MILLIGRAM, DAILY
     Route: 048
  18. AMLODIPINE [Concomitant]
     Active Substance: AMLODIPINE BESYLATE
     Indication: Product used for unknown indication
     Dosage: 2.5 MILLIGRAM, DAILY
     Route: 065
  19. AMLODIPINE [Concomitant]
     Active Substance: AMLODIPINE BESYLATE
     Dosage: 5 MILLIGRAM, DAILY
     Route: 048
  20. PANTOPRAZOLE [Concomitant]
     Active Substance: PANTOPRAZOLE
     Indication: Product used for unknown indication
     Dosage: UNK
     Route: 065

REACTIONS (57)
  - Abdominal distension [Fatal]
  - Abdominal pain [Fatal]
  - Abdominal pain upper [Fatal]
  - Acne [Fatal]
  - Back pain [Fatal]
  - Blood pressure increased [Fatal]
  - Body temperature decreased [Fatal]
  - Constipation [Fatal]
  - Diarrhoea [Fatal]
  - Dizziness [Fatal]
  - Dry mouth [Fatal]
  - Dry skin [Fatal]
  - Faeces discoloured [Fatal]
  - Fatigue [Fatal]
  - Flatulence [Fatal]
  - Flushing [Fatal]
  - Frequent bowel movements [Fatal]
  - Headache [Fatal]
  - Hot flush [Fatal]
  - Hyperglycaemia [Fatal]
  - Hypotension [Fatal]
  - Influenza [Fatal]
  - Influenza like illness [Fatal]
  - Malignant neoplasm progression [Fatal]
  - Metastases to liver [Fatal]
  - Muscular weakness [Fatal]
  - Musculoskeletal pain [Fatal]
  - Myalgia [Fatal]
  - Nasal congestion [Fatal]
  - Nausea [Fatal]
  - Nervousness [Fatal]
  - Oedema peripheral [Fatal]
  - Oral herpes [Fatal]
  - Psoriasis [Fatal]
  - Somnolence [Fatal]
  - Steatorrhoea [Fatal]
  - Vomiting [Fatal]
  - Weight increased [Fatal]
  - Blood pressure systolic increased [Fatal]
  - Arthralgia [Fatal]
  - Bacterial infection [Fatal]
  - Balance disorder [Fatal]
  - Carcinoid tumour [Fatal]
  - Coccydynia [Fatal]
  - Fall [Fatal]
  - Lung disorder [Fatal]
  - Meniere^s disease [Fatal]
  - Oropharyngeal pain [Fatal]
  - Pain in extremity [Fatal]
  - Platelet count decreased [Fatal]
  - Pneumonia [Fatal]
  - Scratch [Fatal]
  - Vaginal infection [Fatal]
  - Blood glucose decreased [Fatal]
  - Death [Fatal]
  - Drug hypersensitivity [Unknown]
  - Muscle spasms [Unknown]
